FAERS Safety Report 12973552 (Version 3)
Quarter: 2016Q4

REPORT INFORMATION
  Report Type: Spontaneous
  Country: KZ (occurrence: KZ)
  Receive Date: 20161124
  Receipt Date: 20161216
  Transmission Date: 20170207
  Serious: Yes (Life-Threatening, Hospitalization, Other)
  Sender: FDA-Public Use
  Company Number: KZ-JNJFOC-20161123746

PATIENT
  Age: 60 Year
  Sex: Male
  Weight: 97 kg

DRUGS (4)
  1. XARELTO [Suspect]
     Active Substance: RIVAROXABAN
     Indication: DEEP VEIN THROMBOSIS
     Route: 048
     Dates: start: 20161110, end: 20161120
  2. KETOPROFEN. [Concomitant]
     Active Substance: KETOPROFEN
     Route: 065
     Dates: start: 20161110, end: 20161118
  3. PENTOXIFYLLINE. [Concomitant]
     Active Substance: PENTOXIFYLLINE
     Route: 065
     Dates: start: 20161110, end: 20161118
  4. OMEPRAZOLE. [Concomitant]
     Active Substance: OMEPRAZOLE
     Route: 065
     Dates: start: 20161110, end: 20161118

REACTIONS (3)
  - Lung neoplasm [Unknown]
  - Haemothorax [Unknown]
  - Deep vein thrombosis [Unknown]

NARRATIVE: CASE EVENT DATE: 20161120
